FAERS Safety Report 8367782-8 (Version None)
Quarter: 2012Q2

REPORT INFORMATION
  Report Type: 
  Country: None (occurrence: None)
  Receive Date: 20120517
  Receipt Date: 20120507
  Transmission Date: 20120825
  Serious: Yes (Other)
  Sender: FDA-Public Use
  Company Number: GB-ROCHE-1067202

PATIENT

DRUGS (2)
  1. RITUXIMAB [Suspect]
     Indication: ANAEMIA HAEMOLYTIC AUTOIMMUNE
  2. RITUXIMAB [Suspect]
     Indication: NON-HODGKIN'S LYMPHOMA

REACTIONS (2)
  - INFECTION [None]
  - HYPOGAMMAGLOBULINAEMIA [None]
